FAERS Safety Report 23178857 (Version 1)
Quarter: 2023Q4

REPORT INFORMATION
  Report Type: Spontaneous
  Country: CN (occurrence: CN)
  Receive Date: 20231113
  Receipt Date: 20231113
  Transmission Date: 20240109
  Serious: Yes (Hospitalization)
  Sender: FDA-Public Use
  Company Number: CN-PFIZER INC-PV202300182684

PATIENT
  Age: 65 Year
  Sex: Female
  Weight: 51 kg

DRUGS (2)
  1. PALBOCICLIB [Suspect]
     Active Substance: PALBOCICLIB
     Indication: Neoplasm
     Dosage: 125 MG, CYCLIC, Q4W DAY 1 TO DAY 21
     Route: 048
     Dates: start: 20231009, end: 20231106
  2. FULVESTRANT [Concomitant]
     Active Substance: FULVESTRANT
     Indication: Neoplasm
     Dosage: 500 MG, MONTHLY, ONCE A MONTH, TWICE IN THE FIRST MONTH
     Route: 041
     Dates: start: 20231009, end: 20231106

REACTIONS (1)
  - Myelosuppression [Recovering/Resolving]

NARRATIVE: CASE EVENT DATE: 20231024
